FAERS Safety Report 6657836-6 (Version None)
Quarter: 2010Q1

REPORT INFORMATION
  Report Type: 
  Country: None (occurrence: None)
  Receive Date: 20100326
  Receipt Date: 20100317
  Transmission Date: 20100710
  Serious: Yes (Life-Threatening)
  Sender: FDA-Public Use
  Company Number: 2010S1000020

PATIENT
  Age: 20 Year
  Sex: Male

DRUGS (8)
  1. INOMAX [Suspect]
     Indication: H1N1 INFLUENZA
     Dosage: 20 PPM;CONT;INH, 40PPM; CONT; INH
     Route: 055
     Dates: start: 20100313, end: 20100316
  2. INOMAX [Suspect]
     Indication: PULMONARY HYPERTENSION
     Dosage: 20 PPM;CONT;INH, 40PPM; CONT; INH
     Route: 055
     Dates: start: 20100313, end: 20100316
  3. INOMAX [Suspect]
     Indication: H1N1 INFLUENZA
     Dosage: 20 PPM;CONT;INH, 40PPM; CONT; INH
     Route: 055
     Dates: start: 20100316
  4. INOMAX [Suspect]
     Indication: PULMONARY HYPERTENSION
     Dosage: 20 PPM;CONT;INH, 40PPM; CONT; INH
     Route: 055
     Dates: start: 20100316
  5. INOMAX [Suspect]
     Indication: H1N1 INFLUENZA
     Dosage: 20 PPM;CONT;INH, 40 PPM;CONT;INH
     Route: 055
     Dates: start: 20100313, end: 20100316
  6. INOMAX [Suspect]
     Indication: PULMONARY HYPERTENSION
     Dosage: 20 PPM;CONT;INH, 40 PPM;CONT;INH
     Route: 055
     Dates: start: 20100313, end: 20100316
  7. INOMAX [Suspect]
     Indication: H1N1 INFLUENZA
     Dosage: 20 PPM;CONT;INH, 40 PPM;CONT;INH
     Route: 055
     Dates: start: 20100316
  8. INOMAX [Suspect]
     Indication: PULMONARY HYPERTENSION
     Dosage: 20 PPM;CONT;INH, 40 PPM;CONT;INH
     Route: 055
     Dates: start: 20100316

REACTIONS (5)
  - BLOOD PRESSURE DECREASED [None]
  - CARDIAC ARREST [None]
  - DEVICE MALFUNCTION [None]
  - HEART RATE DECREASED [None]
  - VENTRICULAR FIBRILLATION [None]
